FAERS Safety Report 5391701-X (Version None)
Quarter: 2007Q3

REPORT INFORMATION
  Report Type: 
  Country: None (occurrence: None)
  Receive Date: 20070717
  Receipt Date: 20070704
  Transmission Date: 20080115
  Serious: Yes (Other)
  Sender: FDA-Public Use
  Company Number: 2007S1006063

PATIENT
  Age: 45 Year
  Sex: Female
  Weight: 60 kg

DRUGS (5)
  1. METOPROLOL TARTRATE [Suspect]
     Dosage: 4200 MG;X1;ORAL
     Route: 048
  2. NIFEDIPINE [Suspect]
     Dosage: 1120 MG;X1;ORAL
     Route: 048
  3. PRAZOSIN GITS [Suspect]
     Dosage: 84 MG;X1;ORAL
     Route: 048
  4. GLICLAZIDE (GLICLAZIDE) [Suspect]
     Dosage: 2240 MG;X1;ORAL
     Route: 048
  5. FLUVASTATIN [Suspect]
     Dosage: 280 MG;X1;ORAL
     Route: 048

REACTIONS (12)
  - ATRIOVENTRICULAR BLOCK FIRST DEGREE [None]
  - BLOOD CALCIUM INCREASED [None]
  - BLOOD GLUCOSE INCREASED [None]
  - BLOOD PRESSURE DECREASED [None]
  - DISORIENTATION [None]
  - DIZZINESS [None]
  - LOSS OF CONSCIOUSNESS [None]
  - OVERDOSE [None]
  - RENAL IMPAIRMENT [None]
  - SINUS BRADYCARDIA [None]
  - SOMNOLENCE [None]
  - VOMITING [None]
